FAERS Safety Report 9284686 (Version 1)
Quarter: 2013Q2

REPORT INFORMATION
  Report Type: Spontaneous
  Country: US (occurrence: US)
  Receive Date: 20130513
  Receipt Date: 20130513
  Transmission Date: 20140414
  Serious: No
  Sender: FDA-Public Use
  Company Number: US-009507513-1305USA001024

PATIENT
  Sex: Male

DRUGS (2)
  1. PROVENTIL [Suspect]
     Dosage: TWO PUFFS AT A TIME UP TO FOUR TIMES A DAY
     Dates: start: 20130401
  2. PROVENTIL [Suspect]
     Dosage: UNK
     Dates: start: 2008

REACTIONS (3)
  - Drug dose omission [Unknown]
  - Product quality issue [Unknown]
  - No adverse event [Unknown]
